FAERS Safety Report 4701778-X (Version None)
Quarter: 2005Q2

REPORT INFORMATION
  Report Type: 
  Country: None (occurrence: None)
  Receive Date: 20050624
  Receipt Date: 20050524
  Transmission Date: 20051028
  Serious: No
  Sender: FDA-Public Use
  Company Number: MED000182

PATIENT

DRUGS (1)
  1. LACTATED RINGER'S IN PLASTIC CONTAINER [Suspect]

REACTIONS (6)
  - FEELING ABNORMAL [None]
  - FLUSHING [None]
  - INFUSION RELATED REACTION [None]
  - PALLOR [None]
  - PARAESTHESIA [None]
  - SENSATION OF FOREIGN BODY [None]
